FAERS Safety Report 23300856 (Version 1)
Quarter: 2023Q4

REPORT INFORMATION
  Report Type: Spontaneous
  Country: PL (occurrence: None)
  Receive Date: 20231215
  Receipt Date: 20231215
  Transmission Date: 20240110
  Serious: Yes (Other)
  Sender: FDA-Public Use
  Company Number: 2023A281164

PATIENT
  Age: 15654 Day
  Sex: Male
  Weight: 90 kg

DRUGS (6)
  1. FASENRA [Suspect]
     Active Substance: BENRALIZUMAB
     Route: 058
  2. ALVESCO [Concomitant]
     Active Substance: CICLESONIDE
     Dosage: 160 2X2
  3. SYMBICORT [Concomitant]
     Active Substance: BUDESONIDE\FORMOTEROL FUMARATE DIHYDRATE
     Dosage: 320 2X1
  4. MOMESTER [Concomitant]
     Dosage: 2X1
  5. MONTELUKAST SODIUM [Concomitant]
     Active Substance: MONTELUKAST SODIUM
  6. PULMICORR [Concomitant]
     Dosage: NEBULIZATION 0.5MG/ML 2X1,

REACTIONS (2)
  - Asthma [Recovering/Resolving]
  - Sinus disorder [Recovering/Resolving]

NARRATIVE: CASE EVENT DATE: 20231201
